FAERS Safety Report 25664592 (Version 1)
Quarter: 2025Q3

REPORT INFORMATION
  Report Type: Spontaneous
  Country: US (occurrence: None)
  Receive Date: 20250808
  Receipt Date: 20250808
  Transmission Date: 20251020
  Serious: No
  Sender: FDA-CTU
  Company Number: None

PATIENT
  Age: 42 Year
  Sex: Female
  Weight: 51.75 kg

DRUGS (2)
  1. ZURZUVAE [Suspect]
     Active Substance: ZURANOLONE
     Indication: Perinatal depression
     Dosage: 2 CAPSULES AT BEDTIME  ORAL
     Route: 048
     Dates: start: 20250725, end: 20250731
  2. VITAMIN D [Concomitant]
     Active Substance: VITAMIN D NOS

REACTIONS (9)
  - Perinatal depression [None]
  - Confusional state [None]
  - Balance disorder [None]
  - Gait disturbance [None]
  - Tremor [None]
  - Coordination abnormal [None]
  - Somnolence [None]
  - Diarrhoea [None]
  - Speech disorder [None]

NARRATIVE: CASE EVENT DATE: 20250726
